FAERS Safety Report 22173453 (Version 1)
Quarter: 2023Q2

REPORT INFORMATION
  Report Type: Spontaneous
  Country: US (occurrence: US)
  Receive Date: 20230404
  Receipt Date: 20230404
  Transmission Date: 20230722
  Serious: Yes (Hospitalization, Other)
  Sender: FDA-Public Use
  Company Number: US-ELI_LILLY_AND_COMPANY-US202303015870

PATIENT
  Age: 68 Year
  Sex: Female

DRUGS (2)
  1. HUMULIN R U-500 [Suspect]
     Active Substance: INSULIN HUMAN
     Indication: Type 2 diabetes mellitus
     Dosage: UNK UNK, PRN (SLIDING SCALE)
     Route: 058
     Dates: start: 2018
  2. ASPIRIN [Concomitant]
     Active Substance: ASPIRIN
     Indication: Thrombosis
     Dosage: 81 MG, BID
     Route: 065

REACTIONS (5)
  - Myocardial infarction [Recovered/Resolved]
  - Haematochezia [Recovered/Resolved]
  - Cerebrovascular accident [Recovered/Resolved]
  - Blood glucose increased [Unknown]
  - Blood glucose decreased [Recovered/Resolved]

NARRATIVE: CASE EVENT DATE: 20220110
